FAERS Safety Report 16901299 (Version 3)
Quarter: 2019Q4

REPORT INFORMATION
  Report Type: Spontaneous
  Country: US (occurrence: US)
  Receive Date: 20191009
  Receipt Date: 20191126
  Transmission Date: 20200122
  Serious: Yes (Death, Hospitalization, Disabling, Other)
  Sender: FDA-Public Use
  Company Number: US-009507513-1910USA006515

PATIENT
  Age: 52 Year
  Sex: Female
  Weight: 79.82 kg

DRUGS (11)
  1. COLACE [Concomitant]
     Active Substance: DOCUSATE SODIUM
     Dosage: 100 MILLIGRAM (1 CAPS), BID
     Route: 048
  2. SENNOSIDES. [Concomitant]
     Active Substance: SENNOSIDES
     Dosage: 2 TABLETS, QD
     Route: 048
  3. NEURONTIN [Concomitant]
     Active Substance: GABAPENTIN
     Dosage: 300 MILLIGRAM (1 CAPS), TID
     Route: 048
  4. COLACE [Concomitant]
     Active Substance: DOCUSATE SODIUM
     Dosage: 100 MILLIGRAM, BID
     Route: 048
  5. TOPROL XL [Concomitant]
     Active Substance: METOPROLOL SUCCINATE
     Dosage: 12.5 MILLIGRAM DAILY X 7 DAYS, THEN EVERY OTHER DAY X 7 DAYS
     Route: 048
  6. KEYTRUDA [Suspect]
     Active Substance: PEMBROLIZUMAB
     Indication: CERVIX CARCINOMA RECURRENT
     Dosage: 200 MILLIGRAM, Q3W
     Route: 042
     Dates: start: 20190305
  7. TYLENOL [Concomitant]
     Active Substance: ACETAMINOPHEN
     Indication: ARTHRALGIA
     Dosage: 650 MILLIGRAM
     Route: 048
  8. MIRALAX [Concomitant]
     Active Substance: POLYETHYLENE GLYCOL 3350
     Dosage: 17 GIN 8OZ WATER DAILY
     Route: 048
  9. TOPROL XL [Concomitant]
     Active Substance: METOPROLOL SUCCINATE
     Dosage: 1 TABLET, DAILY
     Route: 048
  10. WITCH HAZEL. [Concomitant]
     Active Substance: WITCH HAZEL
     Indication: VULVOVAGINAL DISCOMFORT
     Dosage: UNK, PRN
     Route: 061
  11. KEYTRUDA [Suspect]
     Active Substance: PEMBROLIZUMAB
     Indication: CERVIX CANCER METASTATIC

REACTIONS (18)
  - Cardiomyopathy [Unknown]
  - Intracranial aneurysm [Unknown]
  - Malignant neoplasm progression [Fatal]
  - Fatigue [Not Recovered/Not Resolved]
  - Cardiac failure acute [Not Recovered/Not Resolved]
  - Ureteral stent insertion [Unknown]
  - Haemorrhoids [Unknown]
  - Decreased appetite [Not Recovered/Not Resolved]
  - Pulmonary congestion [Unknown]
  - Dyspnoea [Not Recovered/Not Resolved]
  - Tooth disorder [Unknown]
  - Joint dislocation [Unknown]
  - Bacterial infection [Unknown]
  - Back pain [Not Recovered/Not Resolved]
  - Thrombotic stroke [Not Recovered/Not Resolved]
  - Nausea [Not Recovered/Not Resolved]
  - Productive cough [Not Recovered/Not Resolved]
  - Diarrhoea [Unknown]

NARRATIVE: CASE EVENT DATE: 2019
